FAERS Safety Report 8358766-4 (Version None)
Quarter: 2012Q2

REPORT INFORMATION
  Report Type: 
  Country: None (occurrence: None)
  Receive Date: 20120514
  Receipt Date: 20120502
  Transmission Date: 20120825
  Serious: Yes (Other)
  Sender: FDA-Public Use
  Company Number: CA-ELI_LILLY_AND_COMPANY-CA201205001321

PATIENT
  Age: 67 Year
  Sex: Female

DRUGS (15)
  1. TYLENOL W/ CODEINE NO. 3 [Concomitant]
  2. MULTI-VITAMIN [Concomitant]
  3. LEFLUNOMIDE [Concomitant]
  4. ADVAIR DISKUS 100/50 [Concomitant]
  5. PREDNISONE [Concomitant]
  6. PROBIOTICS NOS [Concomitant]
  7. CALCIUM [Concomitant]
  8. PERINDOPRIL ERBUMINE [Concomitant]
  9. DESLORATADINE [Concomitant]
  10. FORTEO [Suspect]
     Indication: OSTEOPOROSIS
     Dosage: 20 UG, QD
     Route: 058
     Dates: start: 20110203
  11. IBUPROFEN [Concomitant]
  12. VITAMIN D [Concomitant]
  13. OMNARIS [Concomitant]
  14. DILTIAZEM [Concomitant]
  15. LIPITOR [Concomitant]

REACTIONS (1)
  - FEMUR FRACTURE [None]
